FAERS Safety Report 19740290 (Version 1)
Quarter: 2021Q3

REPORT INFORMATION
  Report Type: Report from Study
  Country: None (occurrence: US)
  Receive Date: 20210824
  Receipt Date: 20210824
  Transmission Date: 20211014
  Serious: Yes (Hospitalization, Other)
  Sender: FDA-Public Use
  Company Number: US-ABBVIE-21K-163-4042185-00

PATIENT
  Age: 57 Year
  Sex: Female
  Weight: 89.89 kg

DRUGS (2)
  1. HUMIRA [Suspect]
     Active Substance: ADALIMUMAB
     Indication: OSTEOARTHRITIS
  2. HUMIRA [Suspect]
     Active Substance: ADALIMUMAB
     Indication: RHEUMATOID ARTHRITIS
     Dosage: CITRATE FREE
     Route: 058
     Dates: start: 2009, end: 202107

REACTIONS (8)
  - Off label use [Not Recovered/Not Resolved]
  - Drug tolerance increased [Unknown]
  - Blood magnesium decreased [Recovering/Resolving]
  - Myocardial infarction [Recovered/Resolved]
  - Muscle spasms [Recovering/Resolving]
  - Protein total increased [Unknown]
  - Pain [Recovering/Resolving]
  - Drug ineffective [Unknown]

NARRATIVE: CASE EVENT DATE: 20210811
